FAERS Safety Report 13889606 (Version 1)
Quarter: 2017Q3

REPORT INFORMATION
  Report Type: Spontaneous
  Country: US (occurrence: US)
  Receive Date: 20170822
  Receipt Date: 20170822
  Transmission Date: 20171127
  Serious: Yes (Hospitalization)
  Sender: FDA-Public Use
  Company Number: US-ROCHE-1070285

PATIENT
  Sex: Female
  Weight: 68.1 kg

DRUGS (2)
  1. PREDNISONE. [Concomitant]
     Active Substance: PREDNISONE
     Route: 065
  2. ACTEMRA [Suspect]
     Active Substance: TOCILIZUMAB
     Indication: RHEUMATOID ARTHRITIS
     Route: 042

REACTIONS (6)
  - Delusion [Unknown]
  - Headache [Unknown]
  - Rash [Unknown]
  - Gait disturbance [Unknown]
  - Cellulitis [Unknown]
  - Weight fluctuation [Unknown]
